FAERS Safety Report 12939403 (Version 2)
Quarter: 2016Q4

REPORT INFORMATION
  Report Type: Spontaneous
  Country: DE (occurrence: DE)
  Receive Date: 20161114
  Receipt Date: 20161128
  Transmission Date: 20170207
  Serious: Yes (Hospitalization, Other)
  Sender: FDA-Public Use
  Company Number: DE-HQ SPECIALTY-DE-2016INT000936

PATIENT
  Age: 59 Year
  Sex: Male

DRUGS (2)
  1. CISPLATIN. [Suspect]
     Active Substance: CISPLATIN
     Indication: NEOPLASM MALIGNANT
     Dosage: 90 MG/M2 KOF, 100%; Q29; Q57
  2. ETOPOSIDE. [Suspect]
     Active Substance: ETOPOSIDE
     Indication: NEOPLASM MALIGNANT
     Dosage: 270 MG/M2 KOF, 100%; Q29; Q57

REACTIONS (6)
  - Cytomegalovirus infection [Recovering/Resolving]
  - Agitation [Recovering/Resolving]
  - Disorientation [Recovering/Resolving]
  - Thrombocytopenia [Unknown]
  - Incontinence [Recovering/Resolving]
  - Ataxia [Recovering/Resolving]
